FAERS Safety Report 5077104-6 (Version None)
Quarter: 2006Q3

REPORT INFORMATION
  Report Type: 
  Country: None (occurrence: None)
  Receive Date: 20060810
  Receipt Date: 20051212
  Transmission Date: 20061208
  Serious: No
  Sender: FDA-Public Use
  Company Number: US-GLAXOSMITHKLINE-A0585537A

PATIENT
  Age: 37 Year
  Sex: Female

DRUGS (12)
  1. PAXIL [Suspect]
     Dosage: 20MG PER DAY
     Route: 048
  2. SYNTHROID [Concomitant]
  3. HUMALOG [Concomitant]
  4. LANTUS [Concomitant]
  5. LOTENSIN [Concomitant]
  6. ZOCOR [Concomitant]
  7. LOESTRIN 24 [Concomitant]
  8. NASACOR [Concomitant]
  9. TILADE [Concomitant]
  10. PATANOL [Concomitant]
  11. ALBUTEROL SPIROS [Concomitant]
  12. CLARITIN-D [Concomitant]

REACTIONS (2)
  - FEELING ABNORMAL [None]
  - HEART RATE INCREASED [None]
